FAERS Safety Report 17041591 (Version 1)
Quarter: 2019Q4

REPORT INFORMATION
  Report Type: Spontaneous
  Country: US (occurrence: US)
  Receive Date: 20191016
  Receipt Date: 20191016
  Transmission Date: 20200122
  Serious: No
  Sender: FDA-Public Use
  Company Number: None

PATIENT
  Age: 73 Year
  Sex: Male
  Weight: 140.16 kg

DRUGS (1)
  1. LOSARTAN. [Suspect]
     Active Substance: LOSARTAN
     Route: 048
     Dates: start: 20150901, end: 20190503

REACTIONS (4)
  - Cough [None]
  - Dyspnoea [None]
  - Self-medication [None]
  - Wheezing [None]

NARRATIVE: CASE EVENT DATE: 20170103
